FAERS Safety Report 15845555 (Version 1)
Quarter: 2019Q1

REPORT INFORMATION
  Report Type: Spontaneous
  Country: US (occurrence: US)
  Receive Date: 20190119
  Receipt Date: 20190119
  Transmission Date: 20190417
  Serious: No
  Sender: FDA-Public Use
  Company Number: US-TEVA-2018-US-993562

PATIENT
  Sex: Male

DRUGS (1)
  1. COPAXONE [Suspect]
     Active Substance: GLATIRAMER ACETATE
     Dates: start: 20181118

REACTIONS (3)
  - Injection site mass [Recovered/Resolved]
  - Incorrect route of product administration [Recovered/Resolved]
  - Injection site urticaria [Recovered/Resolved]
